FAERS Safety Report 5609231-6 (Version None)
Quarter: 2008Q1

REPORT INFORMATION
  Report Type: 
  Country: None (occurrence: None)
  Receive Date: 20080131
  Receipt Date: 20080128
  Transmission Date: 20080703
  Serious: Yes (Other)
  Sender: FDA-Public Use
  Company Number: US-ASTRAZENECA-2008UW01941

PATIENT
  Age: 60 Year
  Sex: Female

DRUGS (7)
  1. ARIMIDEX [Suspect]
     Indication: BREAST CANCER FEMALE
     Route: 048
     Dates: start: 20080101
  2. HERCEPTIN [Suspect]
     Dates: start: 20080107
  3. LIPITOR [Concomitant]
  4. LISINOPRIL [Concomitant]
  5. CALCIUM WITH D [Concomitant]
  6. VITAMIN CAP [Concomitant]
  7. ASPIRIN [Concomitant]

REACTIONS (2)
  - BLINDNESS UNILATERAL [None]
  - RETINAL DISORDER [None]
